FAERS Safety Report 5580545-1 (Version None)
Quarter: 2008Q1

REPORT INFORMATION
  Report Type: 
  Country: None (occurrence: None)
  Receive Date: 20080103
  Receipt Date: 20071221
  Transmission Date: 20080703
  Serious: Yes (Hospitalization)
  Sender: FDA-Public Use
  Company Number: US-GILEAD-2007-0014739

PATIENT
  Sex: Male
  Weight: 74.002 kg

DRUGS (20)
  1. AMBRISENTAN [Suspect]
     Indication: PULMONARY HYPERTENSION
     Dates: start: 20070118, end: 20070709
  2. AMBRISENTAN [Suspect]
     Dates: start: 20070710
  3. ZESTRIL [Concomitant]
     Indication: CORONARY ARTERY DISEASE
     Dates: start: 20070601, end: 20071201
  4. ZESTRIL [Concomitant]
     Dates: start: 20060801, end: 20070601
  5. LASIX [Concomitant]
     Indication: CARDIAC FAILURE CONGESTIVE
     Route: 048
     Dates: start: 20071202
  6. LASIX [Concomitant]
     Route: 048
     Dates: start: 20071112, end: 20071201
  7. LASIX [Concomitant]
     Route: 048
     Dates: start: 20070601, end: 20071111
  8. LASIX [Concomitant]
     Route: 048
     Dates: start: 20070122, end: 20070701
  9. LASIX [Concomitant]
     Route: 048
     Dates: start: 20060801, end: 20070122
  10. OXYGEN [Concomitant]
     Indication: PULMONARY HYPERTENSION
     Route: 045
     Dates: start: 20060801
  11. OXYGEN [Concomitant]
     Indication: IDIOPATHIC PULMONARY FIBROSIS
  12. FLONASE [Concomitant]
     Indication: IDIOPATHIC PULMONARY FIBROSIS
     Route: 055
     Dates: start: 20071112
  13. ASMANEX TWISTHALER [Concomitant]
     Indication: IDIOPATHIC PULMONARY FIBROSIS
     Route: 055
     Dates: start: 20071112
  14. ADVAIR DISKUS 100/50 [Concomitant]
     Route: 055
     Dates: start: 20060801, end: 20071112
  15. ATROVENT [Concomitant]
     Route: 055
     Dates: start: 20060801
  16. ZANTAC [Concomitant]
     Indication: DYSPEPSIA
     Dates: start: 20060101
  17. PAXIL [Concomitant]
     Indication: DEPRESSION
     Route: 048
     Dates: start: 20070507
  18. POTASSIUM CHLORIDE [Concomitant]
     Route: 048
     Dates: start: 20060801
  19. ACTONEL [Concomitant]
     Indication: RHEUMATOID ARTHRITIS
     Dates: start: 20060701
  20. DARVOCET [Concomitant]
     Indication: BACK PAIN
     Route: 048
     Dates: start: 19870101

REACTIONS (1)
  - SYNCOPE [None]
